FAERS Safety Report 15641451 (Version 4)
Quarter: 2018Q4

REPORT INFORMATION
  Report Type: Spontaneous
  Country: AU (occurrence: AU)
  Receive Date: 20181120
  Receipt Date: 20181207
  Transmission Date: 20190205
  Serious: Yes (Other)
  Sender: FDA-Public Use
  Company Number: AU-ALEXION-A201815337

PATIENT
  Age: 17 Year
  Sex: Female
  Weight: 39 kg

DRUGS (5)
  1. VALGANCICLOVIR. [Concomitant]
     Active Substance: VALGANCICLOVIR
     Indication: PRODUCT USED FOR UNKNOWN INDICATION
     Dosage: UNK
     Route: 065
  2. MMF [Concomitant]
     Active Substance: MYCOPHENOLATE MOFETIL
     Indication: PRODUCT USED FOR UNKNOWN INDICATION
     Dosage: UNK
     Route: 065
  3. SOLIRIS [Suspect]
     Active Substance: ECULIZUMAB
     Dosage: 900 MG, Q2W
     Route: 065
  4. WARFARIN [Concomitant]
     Active Substance: WARFARIN
     Indication: THROMBOSIS
     Dosage: UNK
     Route: 065
  5. SOLIRIS [Suspect]
     Active Substance: ECULIZUMAB
     Indication: ATYPICAL HAEMOLYTIC URAEMIC SYNDROME
     Dosage: 900 MG, QW FOR 4 DOSES
     Route: 065

REACTIONS (13)
  - Red cell fragmentation syndrome [Not Recovered/Not Resolved]
  - Renal ischaemia [Unknown]
  - Renal tubular necrosis [Unknown]
  - Bone marrow failure [Unknown]
  - Platelet count decreased [Unknown]
  - Pulmonary hypertension [Recovering/Resolving]
  - Transfusion reaction [Unknown]
  - Anaemia [Recovered/Resolved]
  - Neutropenia [Recovering/Resolving]
  - Incorrect dose administered [Unknown]
  - Anuria [Unknown]
  - Thrombocytopenia [Recovered/Resolved]
  - Haemoglobin decreased [Unknown]
